FAERS Safety Report 7771176-3 (Version None)
Quarter: 2011Q3

REPORT INFORMATION
  Report Type: 
  Country: None (occurrence: None)
  Receive Date: 20110922
  Receipt Date: 20101207
  Transmission Date: 20111222
  Serious: No
  Sender: FDA-Public Use
  Company Number: US-ASTRAZENECA-2010SE58024

PATIENT
  Age: 75 Year
  Sex: Female
  Weight: 54 kg

DRUGS (4)
  1. SEROQUEL [Suspect]
     Indication: SLEEP DISORDER
     Dosage: 1/2 TABLET AT BEDTIME
     Route: 048
  2. AXOLON [Concomitant]
     Indication: PARKINSON'S DISEASE
  3. LEVADOPA [Concomitant]
     Indication: PARKINSON'S DISEASE
  4. REMPRIL [Concomitant]

REACTIONS (1)
  - GASTRIC DILATATION [None]
